FAERS Safety Report 21785055 (Version 1)
Quarter: 2022Q4

REPORT INFORMATION
  Report Type: Spontaneous
  Country: US (occurrence: US)
  Receive Date: 20221227
  Receipt Date: 20221227
  Transmission Date: 20230113
  Serious: Yes (Other)
  Sender: FDA-Public Use
  Company Number: US-PFIZER INC-202201388948

PATIENT
  Age: 80 Year
  Sex: Female
  Weight: 83.01 kg

DRUGS (1)
  1. IBRANCE [Suspect]
     Active Substance: PALBOCICLIB
     Indication: Breast cancer female
     Dosage: 125 MG, CYCLIC (ONCE A DAY; 21 DAYS ON AND 7 DAYS OFF)
     Dates: start: 202205

REACTIONS (13)
  - Seizure [Unknown]
  - Pneumonia [Unknown]
  - Nasopharyngitis [Unknown]
  - Malaise [Unknown]
  - Feeding disorder [Unknown]
  - Wound haemorrhage [Unknown]
  - Pyrexia [Unknown]
  - Cough [Unknown]
  - Urinary incontinence [Unknown]
  - Chest discomfort [Unknown]
  - Feeling abnormal [Unknown]
  - Dysphonia [Unknown]
  - Product dose omission issue [Unknown]

NARRATIVE: CASE EVENT DATE: 20220101
